FAERS Safety Report 14779603 (Version 1)
Quarter: 2018Q2

REPORT INFORMATION
  Report Type: Spontaneous
  Country: ES (occurrence: ES)
  Receive Date: 20180419
  Receipt Date: 20180419
  Transmission Date: 20180711
  Serious: Yes (Other)
  Sender: FDA-Public Use
  Company Number: ES-TEVA-2018-ES-884018

PATIENT
  Age: 45 Year
  Sex: Male

DRUGS (3)
  1. VINCRISTINA SULFATO (809SU) [Suspect]
     Active Substance: VINCRISTINE SULFATE
     Indication: OLIGODENDROGLIOMA
     Route: 042
     Dates: start: 20170624, end: 20170715
  2. LOMUSTINA (378A) [Concomitant]
     Indication: OLIGODENDROGLIOMA
     Route: 048
     Dates: start: 20170616, end: 20170616
  3. NATULAN 50 MG CAPSULAS, 50 C?PSULAS [Suspect]
     Active Substance: PROCARBAZINE HYDROCHLORIDE
     Indication: OLIGODENDROGLIOMA
     Route: 048
     Dates: start: 20170624, end: 20170707

REACTIONS (1)
  - Urticaria [Recovered/Resolved]

NARRATIVE: CASE EVENT DATE: 20170724
